FAERS Safety Report 8355796-3 (Version None)
Quarter: 2012Q2

REPORT INFORMATION
  Report Type: 
  Country: None (occurrence: None)
  Receive Date: 20120514
  Receipt Date: 20120511
  Transmission Date: 20120825
  Serious: No
  Sender: FDA-Public Use
  Company Number: US-PFIZER INC-2012115812

PATIENT
  Sex: Female
  Weight: 71.202 kg

DRUGS (12)
  1. ADVAIR DISKUS 100/50 [Concomitant]
     Indication: CHRONIC OBSTRUCTIVE PULMONARY DISEASE
     Dosage: 500 MG, UNK
  2. CRESTOR [Concomitant]
     Indication: BLOOD CHOLESTEROL ABNORMAL
     Dosage: 10 MG, 1X/DAY
  3. TYLENOL (CAPLET) [Concomitant]
     Indication: OSTEOARTHRITIS
     Dosage: UNK
  4. ISOSORBIDE DINITRATE [Concomitant]
     Indication: CARDIAC DISORDER
     Dosage: 60 MG, 1X/DAY
  5. COUMADIN [Concomitant]
     Indication: CARDIAC DISORDER
     Dosage: TWO AND A HALF TABLETS, 2X/WEEK
  6. NIACIN [Concomitant]
     Indication: BLOOD CHOLESTEROL ABNORMAL
     Dosage: 500 MG, 1X/DAY
  7. CHANTIX [Suspect]
     Dosage: 0.5 MG, 1X/DAY
     Route: 048
  8. ASPIRIN [Concomitant]
     Indication: CARDIAC DISORDER
     Dosage: 81 MG, 1X/DAY
  9. DIGOXIN [Concomitant]
     Indication: ATRIAL FIBRILLATION
     Dosage: 250 UG, 1X/DAY
  10. CHANTIX [Suspect]
     Dosage: UNK
     Route: 048
  11. LISINOPRIL [Concomitant]
     Indication: HYPERTENSION
     Dosage: 20 MG, 2X/DAY
  12. LASIX [Concomitant]
     Dosage: 60 MG, UNK

REACTIONS (1)
  - NAUSEA [None]
